FAERS Safety Report 4510776-0 (Version None)
Quarter: 2004Q4

REPORT INFORMATION
  Report Type: 
  Country: None (occurrence: None)
  Receive Date: 20041122
  Receipt Date: 20041108
  Transmission Date: 20050328
  Serious: Yes (Hospitalization, Other)
  Sender: FDA-Public Use
  Company Number: 15161

PATIENT
  Age: 50 Year
  Sex: Male

DRUGS (2)
  1. ETOPOSIDE INJ. 1G/50ML - BEN VENUE LABS, INC. [Suspect]
     Indication: LYMPHOMA
     Dosage: 135 MG/OTHER
     Dates: start: 20030507
  2. ETOPOSIDE INJ. 1G/50ML - BEN VENUE LABS, INC. [Suspect]
     Indication: NEOPLASM RECURRENCE
     Dosage: 135 MG/OTHER
     Dates: start: 20030507

REACTIONS (5)
  - ANAEMIA [None]
  - CAMPYLOBACTER INTESTINAL INFECTION [None]
  - FEBRILE NEUTROPENIA [None]
  - STAPHYLOCOCCAL INFECTION [None]
  - THROMBOCYTOPENIA [None]
